FAERS Safety Report 6632339-3 (Version None)
Quarter: 2010Q1

REPORT INFORMATION
  Report Type: 
  Country: None (occurrence: None)
  Receive Date: 20100312
  Receipt Date: 20100305
  Transmission Date: 20100710
  Serious: Yes (Hospitalization)
  Sender: FDA-Public Use
  Company Number: B0639493A

PATIENT
  Sex: Male

DRUGS (3)
  1. AUGMENTIN '125' [Suspect]
     Indication: TOOTHACHE
     Dosage: 1G PER DAY
     Route: 048
     Dates: start: 20100212, end: 20100212
  2. PARACETAMOL [Suspect]
     Indication: TOOTHACHE
     Route: 048
     Dates: start: 20100212, end: 20100212
  3. NIMESULIDE [Suspect]
     Indication: TOOTHACHE
     Dosage: 100MG PER DAY
     Route: 048
     Dates: start: 20100212, end: 20100212

REACTIONS (3)
  - ERYTHRODERMIC PSORIASIS [None]
  - LEUKOCYTOCLASTIC VASCULITIS [None]
  - PETECHIAE [None]
